FAERS Safety Report 17211719 (Version 1)
Quarter: 2019Q4

REPORT INFORMATION
  Report Type: Spontaneous
  Country: CN (occurrence: CN)
  Receive Date: 20191230
  Receipt Date: 20191230
  Transmission Date: 20200122
  Serious: Yes (Other)
  Sender: FDA-Public Use
  Company Number: CN-DRREDDYS-GPV/CHN/19/0117772

PATIENT
  Age: 49 Year
  Sex: Male
  Weight: 68 kg

DRUGS (2)
  1. OLANZAPINE. [Suspect]
     Active Substance: OLANZAPINE
     Indication: PSYCHOTIC DISORDER
     Route: 048
     Dates: start: 20191027
  2. PERPHENAZINE. [Concomitant]
     Active Substance: PERPHENAZINE
     Indication: PSYCHOTIC DISORDER
     Route: 048
     Dates: start: 20191128, end: 20191222

REACTIONS (3)
  - Pyrexia [Recovering/Resolving]
  - Cough [Recovering/Resolving]
  - Blood pressure increased [Recovering/Resolving]

NARRATIVE: CASE EVENT DATE: 20191223
